FAERS Safety Report 6437720-3 (Version None)
Quarter: 2009Q4

REPORT INFORMATION
  Report Type: 
  Country: None (occurrence: None)
  Receive Date: 20091112
  Receipt Date: 20091105
  Transmission Date: 20100525
  Serious: Yes (Hospitalization)
  Sender: FDA-Public Use
  Company Number: FR-PFIZER INC-2009270790

PATIENT
  Age: 51 Year
  Sex: Male

DRUGS (7)
  1. MEDROL [Suspect]
     Indication: GLIOBLASTOMA
     Dosage: 16 MG, 1X/DAY
     Route: 048
     Dates: start: 20090706
  2. NEURONTIN [Suspect]
     Dosage: UNK
     Route: 048
     Dates: end: 20090827
  3. TEMOZOLOMIDE [Suspect]
     Indication: GLIOBLASTOMA
     Dosage: UNK
     Route: 048
     Dates: start: 20090706, end: 20090727
  4. XATRAL [Suspect]
     Dosage: 1 DF, 1X/DAY
     Route: 048
     Dates: end: 20090727
  5. DOMPERIDONE [Concomitant]
  6. FORLAX [Concomitant]
  7. DIFFU K [Concomitant]

REACTIONS (3)
  - CHOLESTASIS [None]
  - CYTOLYTIC HEPATITIS [None]
  - HEPATITIS [None]
